FAERS Safety Report 19330753 (Version 4)
Quarter: 2021Q4

REPORT INFORMATION
  Report Type: Spontaneous
  Country: CH (occurrence: CH)
  Receive Date: 20210528
  Receipt Date: 20211222
  Transmission Date: 20220303
  Serious: Yes (Death)
  Sender: FDA-Public Use
  Company Number: DE-SA-2021SA175753

PATIENT

DRUGS (1)
  1. LIBTAYO [Suspect]
     Active Substance: CEMIPLIMAB-RWLC
     Indication: Squamous cell carcinoma of skin
     Dosage: 350 MG, Q3W
     Dates: start: 201903, end: 202006

REACTIONS (4)
  - Euthanasia [Fatal]
  - Impaired quality of life [Unknown]
  - Therapeutic response decreased [Unknown]
  - Treatment noncompliance [Unknown]
